FAERS Safety Report 16959939 (Version 3)
Quarter: 2019Q4

REPORT INFORMATION
  Report Type: Spontaneous
  Country: BR (occurrence: BR)
  Receive Date: 20191025
  Receipt Date: 20191126
  Transmission Date: 20200122
  Serious: Yes (Death, Hospitalization, Other)
  Sender: FDA-Public Use
  Company Number: BR-AMGEN-BRASP2017096295

PATIENT
  Age: 58 Year
  Sex: Female

DRUGS (3)
  1. ENBREL [Suspect]
     Active Substance: ETANERCEPT
     Indication: RHEUMATOID ARTHRITIS
     Dosage: UNK UNK, 1X/WEEK (EVERY THURSDAY)
     Route: 065
     Dates: start: 20170517
  2. ARAVA [Concomitant]
     Active Substance: LEFLUNOMIDE
     Dosage: UNK
  3. ENBREL [Suspect]
     Active Substance: ETANERCEPT
     Dosage: UNK UNK, 1X/WEEK (EVERY THURSDAY)
     Route: 065
     Dates: start: 20170525

REACTIONS (8)
  - Swelling [Unknown]
  - Pulmonary fibrosis [Fatal]
  - Dyspnoea [Unknown]
  - Pain [Not Recovered/Not Resolved]
  - Rheumatoid arthritis [Unknown]
  - Gait disturbance [Unknown]
  - Arthralgia [Not Recovered/Not Resolved]
  - Haemoptysis [Unknown]
